FAERS Safety Report 7904594-0 (Version None)
Quarter: 2011Q4

REPORT INFORMATION
  Report Type: 
  Country: None (occurrence: None)
  Receive Date: 20111109
  Receipt Date: 20110224
  Transmission Date: 20120403
  Serious: Yes (Hospitalization)
  Sender: FDA-Public Use
  Company Number: US-GLAXOSMITHKLINE-A0915617A

PATIENT
  Age: 76 Year
  Sex: Male

DRUGS (1)
  1. AVANDIA [Suspect]
     Indication: DIABETES MELLITUS
     Dosage: 4MG PER DAY
     Route: 048
     Dates: start: 20040401, end: 20071201

REACTIONS (8)
  - CARDIAC FAILURE CONGESTIVE [None]
  - GENERALISED OEDEMA [None]
  - DIASTOLIC DYSFUNCTION [None]
  - AORTIC VALVE SCLEROSIS [None]
  - ELECTROCARDIOGRAM ABNORMAL [None]
  - DYSPNOEA [None]
  - CARDIOMEGALY [None]
  - OEDEMA [None]
